FAERS Safety Report 12849283 (Version 2)
Quarter: 2017Q2

REPORT INFORMATION
  Report Type: Spontaneous
  Country: IE (occurrence: IE)
  Receive Date: 20161014
  Receipt Date: 20170601
  Transmission Date: 20170830
  Serious: Yes (Other)
  Sender: FDA-Public Use
  Company Number: IE-PFIZER INC-2016437657

PATIENT
  Age: 74 Year
  Sex: Female
  Weight: 57.1 kg

DRUGS (4)
  1. SUTENT [Suspect]
     Active Substance: SUNITINIB MALATE
     Dosage: UNK
     Dates: start: 201104, end: 201107
  2. FOLIC ACID. [Concomitant]
     Active Substance: FOLIC ACID
     Dosage: UNK
  3. SUTENT [Suspect]
     Active Substance: SUNITINIB MALATE
     Indication: METASTATIC RENAL CELL CARCINOMA
     Dosage: 37.5 MG, CYCLIC (ON 4/2 SCHEDULE)
     Route: 048
     Dates: start: 20101116, end: 201103
  4. GALFER [Concomitant]
     Active Substance: IRON
     Dosage: 1 DF, DAILY
     Route: 048

REACTIONS (5)
  - Neoplasm progression [Unknown]
  - Blood pressure increased [Recovered/Resolved]
  - Cellulitis [Recovered/Resolved]
  - Palmar-plantar erythrodysaesthesia syndrome [Recovering/Resolving]
  - Epistaxis [Recovered/Resolved]

NARRATIVE: CASE EVENT DATE: 20110412
